FAERS Safety Report 7642821-8 (Version None)
Quarter: 2011Q3

REPORT INFORMATION
  Report Type: 
  Country: None (occurrence: None)
  Receive Date: 20110728
  Receipt Date: 20110727
  Transmission Date: 20111222
  Serious: No
  Sender: FDA-Public Use
  Company Number: GXKR2011DE01976

PATIENT
  Sex: Male
  Weight: 78 kg

DRUGS (2)
  1. OMEPRAZOLE [Concomitant]
     Dosage: 20 MG, UNK
     Route: 048
  2. VERAPAMIL [Suspect]
     Indication: EXTRASYSTOLES
     Dosage: 120 MG, UNK
     Route: 048
     Dates: start: 20110101, end: 20110614

REACTIONS (7)
  - VISUAL IMPAIRMENT [None]
  - DIZZINESS [None]
  - SOMNOLENCE [None]
  - FEELING HOT [None]
  - PAPULE [None]
  - ERYTHEMA [None]
  - RASH [None]
